FAERS Safety Report 20847463 (Version 2)
Quarter: 2023Q2

REPORT INFORMATION
  Report Type: Report from Study
  Country: AR (occurrence: AR)
  Receive Date: 20220519
  Receipt Date: 20230415
  Transmission Date: 20230722
  Serious: Yes (Other)
  Sender: FDA-Public Use
  Company Number: AR-ABBVIE-22K-007-4399957-00

PATIENT
  Age: 71 Year
  Sex: Male

DRUGS (1)
  1. RINVOQ [Suspect]
     Active Substance: UPADACITINIB
     Indication: Ankylosing spondylitis
     Dosage: 15 MILLIGRAM
     Route: 048
     Dates: start: 20200101

REACTIONS (7)
  - Spinal fracture [Unknown]
  - Spinal deformity [Unknown]
  - Osteomyelitis [Recovering/Resolving]
  - Gait inability [Recovered/Resolved]
  - Synovial disorder [Unknown]
  - Back pain [Recovered/Resolved]
  - Intervertebral disc calcification [Unknown]

NARRATIVE: CASE EVENT DATE: 20230330
